FAERS Safety Report 25548040 (Version 2)
Quarter: 2025Q3

REPORT INFORMATION
  Report Type: Spontaneous
  Country: CA (occurrence: CA)
  Receive Date: 20250714
  Receipt Date: 20250818
  Transmission Date: 20251021
  Serious: Yes (Life-Threatening, Other)
  Sender: TAKEDA
  Company Number: CA-TAKEDA-2025TUS062671

PATIENT
  Age: 16 Year
  Sex: Male
  Weight: 74 kg

DRUGS (22)
  1. PONATINIB [Suspect]
     Active Substance: PONATINIB
     Indication: Philadelphia positive acute lymphocytic leukaemia
     Dosage: 30 MILLIGRAM, QD
     Dates: start: 20241029, end: 20241121
  2. CYTARABINE [Suspect]
     Active Substance: CYTARABINE
     Indication: Philadelphia positive acute lymphocytic leukaemia
     Dates: start: 20241029, end: 20241101
  3. FLUDARABINE [Suspect]
     Active Substance: FLUDARABINE PHOSPHATE
     Indication: Philadelphia positive acute lymphocytic leukaemia
     Dates: start: 20241029, end: 20241101
  4. IDARUBICIN [Suspect]
     Active Substance: IDARUBICIN
     Indication: Philadelphia positive acute lymphocytic leukaemia
     Dates: start: 20241029, end: 20241030
  5. VENCLEXTA [Suspect]
     Active Substance: VENETOCLAX
     Indication: Acute lymphocytic leukaemia
     Dosage: 100 MILLIGRAM, QD
     Dates: start: 20241029
  6. ACETAMINOPHEN [Concomitant]
     Active Substance: ACETAMINOPHEN
     Dates: start: 20241025, end: 20241103
  7. ALLOPURINOL [Concomitant]
     Active Substance: ALLOPURINOL
     Dates: start: 20241025, end: 20241103
  8. CALCIUM [Concomitant]
     Active Substance: CALCIUM
     Dates: start: 20241025, end: 20241103
  9. DEXRAZOXANE [Concomitant]
     Active Substance: DEXRAZOXANE
  10. DIMENHYDRINATE [Concomitant]
     Active Substance: DIMENHYDRINATE
     Dates: start: 20241025, end: 20241103
  11. DIPHENHYDRAMINE [Concomitant]
     Active Substance: DIPHENHYDRAMINE
     Dates: start: 20241025, end: 20241103
  12. METHYLPHENIDATE [Concomitant]
     Active Substance: METHYLPHENIDATE
     Dates: start: 20241025, end: 20241103
  13. METOCLOPRAMIDE [Concomitant]
     Active Substance: METOCLOPRAMIDE
     Dates: start: 20241025, end: 20241103
  14. MYCAMINE [Concomitant]
     Active Substance: MICAFUNGIN SODIUM
  15. OLANZAPINE [Concomitant]
     Active Substance: OLANZAPINE
     Dates: start: 20241025, end: 20241103
  16. PALONOSETRON HYDROCHLORIDE [Concomitant]
     Active Substance: PALONOSETRON HYDROCHLORIDE
     Dates: start: 20241025, end: 20241103
  17. PANTOPRAZOLE [Concomitant]
     Active Substance: PANTOPRAZOLE
     Dates: start: 20241025, end: 20241103
  18. PIPERACILLIN AND TAZOBACTAM [Concomitant]
     Active Substance: PIPERACILLIN SODIUM\TAZOBACTAM SODIUM
     Dates: start: 20241025, end: 20241103
  19. SENNOSIDES [Concomitant]
     Active Substance: SENNOSIDES
     Dates: start: 20241025, end: 20241103
  20. SERTRALINE [Concomitant]
     Active Substance: SERTRALINE HYDROCHLORIDE
     Dates: start: 20241025, end: 20241103
  21. SULFAMETHIZOLE\TRIMETHOPRIM [Concomitant]
     Active Substance: SULFAMETHIZOLE\TRIMETHOPRIM
     Dates: start: 20241025, end: 20241103
  22. URSODIOL [Concomitant]
     Active Substance: URSODIOL

REACTIONS (1)
  - Aplastic anaemia [Recovered/Resolved]

NARRATIVE: CASE EVENT DATE: 20241103
